FAERS Safety Report 9322281 (Version 3)
Quarter: 2013Q3

REPORT INFORMATION
  Report Type: Spontaneous
  Country: JP (occurrence: JP)
  Receive Date: 20130531
  Receipt Date: 20130724
  Transmission Date: 20140515
  Serious: Yes (Hospitalization)
  Sender: FDA-Public Use
  Company Number: JP-VIIV HEALTHCARE LIMITED-B0894854A

PATIENT
  Age: 39 Year
  Sex: Male

DRUGS (25)
  1. LEXIVA [Suspect]
     Indication: HIV INFECTION
     Dosage: 1400MG PER DAY
     Route: 048
     Dates: start: 200609, end: 201012
  2. EPIVIR [Suspect]
     Indication: HIV INFECTION
     Dosage: 150MG TWICE PER DAY
     Route: 048
     Dates: start: 200305, end: 200603
  3. EPIVIR [Suspect]
     Indication: HIV INFECTION
     Dosage: 150MG TWICE PER DAY
     Route: 048
  4. ZERIT [Concomitant]
     Indication: HIV INFECTION
     Route: 048
     Dates: start: 200305, end: 200603
  5. EFAVIRENZ [Concomitant]
     Indication: HIV INFECTION
     Route: 048
     Dates: start: 200305, end: 200603
  6. EMTRICITABINE [Concomitant]
     Indication: HIV INFECTION
     Route: 048
     Dates: start: 200609, end: 201108
  7. TRUVADA [Concomitant]
     Route: 048
  8. EPZICOM [Concomitant]
     Indication: BLOOD CREATININE INCREASED
     Route: 048
     Dates: start: 201204
  9. EPZICOM [Concomitant]
     Dosage: 1IUAX PER DAY
     Route: 048
  10. ISENTRESS [Concomitant]
     Dosage: 400MG TWICE PER DAY
     Route: 048
  11. VALGANCICLOVIR HYDROCHLORIDE [Concomitant]
     Dosage: 900MG PER DAY
     Route: 048
  12. ABACAVIR SULFATE [Concomitant]
     Dosage: 300MG TWICE PER DAY
     Route: 048
  13. UNKNOWN DRUG [Concomitant]
     Dosage: 1IUAX PER DAY
     Route: 048
  14. ATOVAQUONE [Concomitant]
     Dosage: 750MG TWICE PER DAY
     Route: 048
  15. AZITHROMYCIN HYDRATE [Concomitant]
     Route: 065
  16. PYRETHIA [Concomitant]
     Dosage: 4MG PER DAY
     Route: 048
  17. SILECE [Concomitant]
     Dosage: 2MG PER DAY
     Route: 048
  18. SEROQUEL [Concomitant]
     Dosage: 8MG PER DAY
     Route: 048
  19. SEROQUEL [Concomitant]
     Dosage: 4MG PER DAY
     Route: 048
  20. ZYPREXA [Concomitant]
     Dosage: 1MG PER DAY
     Route: 048
  21. RESLIN [Concomitant]
     Dosage: 1MG PER DAY
     Route: 048
  22. TOLEDOMIN [Concomitant]
     Dosage: 1MG THREE TIMES PER DAY
     Route: 048
  23. SEDIEL [Concomitant]
     Dosage: 1MG THREE TIMES PER DAY
     Route: 048
  24. RIVOTRIL [Concomitant]
     Dosage: 1MG THREE TIMES PER DAY
     Route: 048
  25. LEXOTAN [Concomitant]
     Dosage: 1MG THREE TIMES PER DAY
     Route: 048

REACTIONS (11)
  - Suicide attempt [Recovering/Resolving]
  - Lipodystrophy acquired [Recovering/Resolving]
  - Pneumonia [Recovering/Resolving]
  - Anxiety [Unknown]
  - Depressive symptom [Unknown]
  - Cough [Unknown]
  - Rhinorrhoea [Unknown]
  - Pyrexia [Unknown]
  - Myositis [Not Recovered/Not Resolved]
  - Depression [Unknown]
  - Blood creatinine increased [Unknown]
